FAERS Safety Report 6460934-3 (Version None)
Quarter: 2009Q4

REPORT INFORMATION
  Report Type: 
  Country: None (occurrence: None)
  Receive Date: 20091130
  Receipt Date: 20091118
  Transmission Date: 20100525
  Serious: Yes (Other)
  Sender: FDA-Public Use
  Company Number: PT-ASTRAZENECA-2009SE27799

PATIENT
  Age: 26666 Day
  Weight: 70 kg

DRUGS (1)
  1. MARCAINE [Suspect]
     Indication: ANAESTHESIA
     Dosage: 20 MG/ 4 ML ONCE/ SINGLE ADMINISTRATION
     Route: 037
     Dates: start: 20090924

REACTIONS (1)
  - DRUG EFFECT DELAYED [None]
